FAERS Safety Report 7718568-6 (Version None)
Quarter: 2011Q3

REPORT INFORMATION
  Report Type: 
  Country: None (occurrence: None)
  Receive Date: 20110824
  Receipt Date: 20110822
  Transmission Date: 20111222
  Serious: Yes (Hospitalization)
  Sender: FDA-Public Use
  Company Number: 2011SP028559

PATIENT
  Age: 76 Year
  Sex: Female

DRUGS (10)
  1. CLONAZEPAM [Suspect]
     Indication: PRODUCT USED FOR UNKNOWN INDICATION
     Dosage: ;PO
     Route: 048
     Dates: end: 20110223
  2. ACETAMINOPHEN [Concomitant]
  3. LOVENOX [Concomitant]
  4. TRAMADOL HCL [Concomitant]
  5. DEBRIDAT [Concomitant]
  6. MIRTAZAPINE [Suspect]
     Indication: PRODUCT USED FOR UNKNOWN INDICATION
     Dosage: 15 MG;QD;PO  ;PO
     Route: 048
     Dates: start: 20110219, end: 20110223
  7. VENLAFAXINE HCL [Suspect]
     Indication: PRODUCT USED FOR UNKNOWN INDICATION
     Dosage: 37.5 MG;BID;PO
     Route: 048
     Dates: start: 20110125, end: 20110218
  8. OXAZEPAM [Concomitant]
  9. PANTOPRAZOLE [Concomitant]
  10. KAYEXALATE [Concomitant]

REACTIONS (2)
  - HAEMOLYTIC ANAEMIA [None]
  - LEUKOPENIA [None]
